FAERS Safety Report 13854031 (Version 1)
Quarter: 2017Q3

REPORT INFORMATION
  Report Type: Report from Study
  Country: CN (occurrence: CN)
  Receive Date: 20170809
  Receipt Date: 20170809
  Transmission Date: 20171127
  Serious: Yes (Other)
  Sender: FDA-Public Use
  Company Number: CN-BRISTOL-MYERS SQUIBB COMPANY-BMS-2017-070998

PATIENT
  Age: 50 Year
  Sex: Male

DRUGS (2)
  1. ZIPRASIDONE. [Concomitant]
     Active Substance: ZIPRASIDONE
     Indication: SCHIZOPHRENIA
     Route: 065
  2. ARIPIPRAZOLE. [Suspect]
     Active Substance: ARIPIPRAZOLE
     Indication: SCHIZOPHRENIA
     Dosage: 10 MG, UNK
     Route: 065

REACTIONS (3)
  - Therapeutic response decreased [Unknown]
  - Suicide attempt [Unknown]
  - Orthostatic hypertension [Unknown]
